FAERS Safety Report 8798185 (Version 1)
Quarter: 2012Q4

REPORT INFORMATION
  Report Type: 
  Country: AU (occurrence: AU)
  Receive Date: 20120920
  Receipt Date: 20120920
  Transmission Date: 20130627
  Serious: Yes (Death, Hospitalization, Other)
  Sender: FDA-Public Use
  Company Number: AU-PURDUE-USA-2012-0093107

PATIENT
  Age: 43 Year
  Sex: Female

DRUGS (2)
  1. MORPHINE SULFATE (SIMILAR TO NDA 19-516) [Suspect]
     Indication: PRODUCT USED FOR UNKNOWN INDICATION
     Dosage: UNK
     Route: 048
  2. OTHER UNSPECIFIED PAIN MEDICATIONS [Suspect]
     Indication: PAIN

REACTIONS (6)
  - Multi-organ failure [Fatal]
  - Renal impairment [Unknown]
  - Chromaturia [Unknown]
  - Abdominal distension [Unknown]
  - Vomiting [Unknown]
  - Post procedural drainage [Unknown]
